FAERS Safety Report 9546452 (Version 2)
Quarter: 2013Q4

REPORT INFORMATION
  Report Type: Spontaneous
  Country: GB (occurrence: GB)
  Receive Date: 20130923
  Receipt Date: 20131108
  Transmission Date: 20140711
  Serious: Yes (Other)
  Sender: FDA-Public Use
  Company Number: GB-MYLANLABS-2013S1020575

PATIENT
  Age: 44 Year
  Sex: Female
  Weight: 80.5 kg

DRUGS (6)
  1. SERTRALINE HYDROCHLORIDE [Suspect]
     Indication: ANXIETY
     Route: 048
     Dates: start: 20130301, end: 20130426
  2. SERTRALINE HYDROCHLORIDE [Suspect]
     Indication: STRESS
     Route: 048
     Dates: start: 20130301, end: 20130426
  3. SERTRALINE HYDROCHLORIDE [Suspect]
     Indication: ANXIETY
     Route: 048
     Dates: start: 20130426, end: 2013
  4. SERTRALINE HYDROCHLORIDE [Suspect]
     Indication: STRESS
     Route: 048
     Dates: start: 20130426, end: 2013
  5. SERTRALINE HYDROCHLORIDE [Suspect]
     Indication: ANXIETY
     Dates: start: 2013
  6. SERTRALINE HYDROCHLORIDE [Suspect]
     Indication: STRESS
     Dates: start: 2013

REACTIONS (2)
  - Hypoacusis [Unknown]
  - Tinnitus [Unknown]
